FAERS Safety Report 8287613-4 (Version None)
Quarter: 2012Q2

REPORT INFORMATION
  Report Type: 
  Country: None (occurrence: None)
  Receive Date: 20120416
  Receipt Date: 20120410
  Transmission Date: 20120825
  Serious: Yes (Other)
  Sender: FDA-Public Use
  Company Number: PHEH2012US007727

PATIENT
  Sex: Female
  Weight: 58.5 kg

DRUGS (9)
  1. AMANTADINE HCL [Suspect]
     Route: 048
     Dates: start: 20110801, end: 20110901
  2. THYROID TAB [Concomitant]
     Dates: start: 19920101
  3. POLYETHYLENE GLYCOL [Concomitant]
     Dates: start: 20060101
  4. REBIF [Concomitant]
     Dates: start: 20100101
  5. OXCARBAZEPINE [Suspect]
     Route: 048
     Dates: start: 20110801, end: 20110901
  6. AMITRIPTYLINE HCL [Concomitant]
     Dates: start: 19870101
  7. AMPYRA [Suspect]
     Indication: GAIT DISTURBANCE
     Dosage: 10 MG, BID
     Route: 048
     Dates: start: 20110801, end: 20110901
  8. TOPAMAX [Concomitant]
     Dates: start: 20020101
  9. LYRICA [Concomitant]
     Dates: start: 20100101

REACTIONS (5)
  - MULTIPLE SCLEROSIS RELAPSE [None]
  - IMPAIRED DRIVING ABILITY [None]
  - PSYCHIATRIC SYMPTOM [None]
  - PAIN IN EXTREMITY [None]
  - DISTURBANCE IN ATTENTION [None]
